FAERS Safety Report 5232980-9 (Version None)
Quarter: 2007Q1

REPORT INFORMATION
  Report Type: 
  Country: None (occurrence: None)
  Receive Date: 20061201
  Receipt Date: 20060920
  Transmission Date: 20070707
  Serious: No
  Sender: FDA-Public Use
  Company Number: 2006PV021595

PATIENT
  Age: 81 Year
  Sex: Female
  Weight: 73.4827 kg

DRUGS (6)
  1. BYETTA [Suspect]
     Indication: DIABETES MELLITUS NON-INSULIN-DEPENDENT
     Dosage: 5 MCG;BID;SC
     Route: 058
     Dates: start: 20051118
  2. GLUCOVANCE [Concomitant]
  3. ELAVIL [Concomitant]
  4. NEXIUM [Concomitant]
  5. CADUET [Concomitant]
  6. ASPIRIN [Concomitant]

REACTIONS (3)
  - DIARRHOEA [None]
  - FAECAL INCONTINENCE [None]
  - WEIGHT DECREASED [None]
